FAERS Safety Report 7805902-1 (Version None)
Quarter: 2011Q4

REPORT INFORMATION
  Report Type: 
  Country: None (occurrence: None)
  Receive Date: 20111011
  Receipt Date: 20090928
  Transmission Date: 20120403
  Serious: No
  Sender: FDA-Public Use
  Company Number: 2009BI031270

PATIENT
  Sex: Female

DRUGS (2)
  1. REBIF [Concomitant]
  2. TYSABRI [Suspect]
     Indication: MULTIPLE SCLEROSIS
     Route: 042
     Dates: start: 20090422, end: 20090721

REACTIONS (4)
  - MULTIPLE ALLERGIES [None]
  - URTICARIA [None]
  - MULTIPLE SCLEROSIS RELAPSE [None]
  - HYPERSENSITIVITY [None]
